FAERS Safety Report 4991934-8 (Version None)
Quarter: 2006Q2

REPORT INFORMATION
  Report Type: 
  Country: None (occurrence: None)
  Receive Date: 20060504
  Receipt Date: 20060425
  Transmission Date: 20061013
  Serious: Yes (Death)
  Sender: FDA-Public Use
  Company Number: KR-JNJFOC-20060405341

PATIENT
  Sex: Female
  Weight: 52 kg

DRUGS (5)
  1. REMINYL [Suspect]
     Route: 048
  2. REMINYL [Suspect]
     Route: 048
  3. AMLODIPINE [Concomitant]
     Indication: HYPERTENSION
  4. METOLAZONE [Concomitant]
     Indication: HYPERTENSION
  5. AMINOPHYLLINE [Concomitant]
     Route: 042

REACTIONS (3)
  - CHRONIC OBSTRUCTIVE PULMONARY DISEASE [None]
  - PNEUMONIA [None]
  - SEPTIC SHOCK [None]
